FAERS Safety Report 8423263-4 (Version None)
Quarter: 2012Q2

REPORT INFORMATION
  Report Type: 
  Country: None (occurrence: None)
  Receive Date: 20120323
  Receipt Date: 20110325
  Transmission Date: 20120825
  Serious: Yes (Hospitalization, Other)
  Sender: FDA-Public Use
  Company Number: 163-21880-11022300

PATIENT
  Age: 83 Year
  Sex: Female
  Weight: 53.0709 kg

DRUGS (16)
  1. OXYCODONE HCL [Concomitant]
  2. FOLIC ACID [Concomitant]
  3. PRILOSEC [Concomitant]
  4. AGGRENOX [Concomitant]
  5. CELEBREX [Concomitant]
  6. EXJADE [Concomitant]
  7. REVLIMID [Suspect]
     Indication: MULTIPLE MYELOMA
     Dosage: 15 MG, 1 IN 1 D, PO ; 10-20MG, PO ; 10 MG, 1 IN 1 D, PO ; 10 MG, DAILY X 21 DAYS, PO
     Route: 048
     Dates: start: 20090201
  8. REVLIMID [Suspect]
     Indication: MULTIPLE MYELOMA
     Dosage: 15 MG, 1 IN 1 D, PO ; 10-20MG, PO ; 10 MG, 1 IN 1 D, PO ; 10 MG, DAILY X 21 DAYS, PO
     Route: 048
     Dates: start: 20090301
  9. REVLIMID [Suspect]
     Indication: MULTIPLE MYELOMA
     Dosage: 15 MG, 1 IN 1 D, PO ; 10-20MG, PO ; 10 MG, 1 IN 1 D, PO ; 10 MG, DAILY X 21 DAYS, PO
     Route: 048
     Dates: start: 20101019, end: 20110106
  10. REVLIMID [Suspect]
     Indication: MULTIPLE MYELOMA
     Dosage: 15 MG, 1 IN 1 D, PO ; 10-20MG, PO ; 10 MG, 1 IN 1 D, PO ; 10 MG, DAILY X 21 DAYS, PO
     Route: 048
     Dates: start: 20100501
  11. ACYCLOVIR [Concomitant]
  12. DEXAMETHASONE [Concomitant]
  13. MARINOL [Concomitant]
  14. POTASSIUM CHLORIDE [Concomitant]
  15. CALCIUM CARBONATE [Concomitant]
  16. VELCADE [Concomitant]

REACTIONS (5)
  - PANCYTOPENIA [None]
  - HAEMOGLOBIN DECREASED [None]
  - WHITE BLOOD CELL COUNT DECREASED [None]
  - MULTIPLE MYELOMA [None]
  - NEOPLASM PROGRESSION [None]
